FAERS Safety Report 4708394-4 (Version None)
Quarter: 2005Q3

REPORT INFORMATION
  Report Type: 
  Country: None (occurrence: None)
  Receive Date: 20050705
  Receipt Date: 20050705
  Transmission Date: 20060218
  Serious: Yes (Death)
  Sender: FDA-Public Use
  Company Number: None

PATIENT
  Sex: Male

DRUGS (7)
  1. FLUDARABINE [Suspect]
     Indication: PREOPERATIVE CARE
     Dosage: 60 MG DAILY INTRAVENOUS
     Route: 042
     Dates: start: 20041019, end: 20041023
  2. MELPHALAN [Suspect]
     Dosage: 320 DAILY INTRAVENOUS
     Route: 042
     Dates: start: 20041024, end: 20041024
  3. PREDNISONE [Concomitant]
  4. VORICONAZOLE [Concomitant]
  5. PREVACID [Concomitant]
  6. LOVENOX [Concomitant]
  7. ATENOLOL VALTREX [Concomitant]

REACTIONS (7)
  - BLOOD PRESSURE DECREASED [None]
  - CONFUSIONAL STATE [None]
  - ELECTROENCEPHALOGRAM ABNORMAL [None]
  - HYPOXIA [None]
  - NERVOUS SYSTEM DISORDER [None]
  - PYREXIA [None]
  - UNRESPONSIVE TO VERBAL STIMULI [None]
